FAERS Safety Report 7577488-0 (Version None)
Quarter: 2011Q2

REPORT INFORMATION
  Report Type: 
  Country: None (occurrence: None)
  Receive Date: 20110628
  Receipt Date: 20110608
  Transmission Date: 20111010
  Serious: Yes (Other)
  Sender: FDA-Public Use
  Company Number: US-BAYER-201039057NA

PATIENT
  Age: 32 Year
  Sex: Female
  Weight: 86.168 kg

DRUGS (13)
  1. YASMIN [Suspect]
     Indication: ACNE
  2. ORAL CONTRACEPTIVE NOS [Concomitant]
     Route: 048
  3. YAZ [Suspect]
     Indication: CONTRACEPTION
     Dosage: UNK
     Dates: start: 20060101, end: 20080101
  4. YAZ [Suspect]
     Indication: ACNE
  5. PHAZYME [Concomitant]
     Indication: FLATULENCE
     Route: 048
  6. ADVIL LIQUI-GELS [Concomitant]
     Route: 048
  7. CLARINEX [Concomitant]
     Route: 048
  8. DROSPIRENONE AND ETHINYL ESTRADIOL [Suspect]
     Indication: PRODUCT USED FOR UNKNOWN INDICATION
     Dosage: UNK
     Dates: start: 20060101, end: 20080101
  9. RIBOFLAVIN [Concomitant]
     Route: 048
  10. MAGNESIUM [Concomitant]
     Route: 048
  11. MAXALT [Concomitant]
     Route: 048
  12. YASMIN [Suspect]
     Indication: CONTRACEPTION
     Dosage: UNK UNK, QD
     Route: 048
     Dates: start: 20060101, end: 20080101
  13. BENADRYL [Concomitant]
     Indication: MULTIPLE ALLERGIES
     Route: 048

REACTIONS (4)
  - GALLBLADDER NON-FUNCTIONING [None]
  - ANXIETY [None]
  - CHOLECYSTITIS CHRONIC [None]
  - BILIARY DYSKINESIA [None]
